FAERS Safety Report 15325294 (Version 1)
Quarter: 2018Q3

REPORT INFORMATION
  Report Type: Spontaneous
  Country: US (occurrence: US)
  Receive Date: 20180822
  Receipt Date: 20180822
  Transmission Date: 20181010
  Serious: No
  Sender: FDA-Public Use
  Company Number: None

PATIENT
  Sex: Female
  Weight: 81.65 kg

DRUGS (1)
  1. XELJANZ [Suspect]
     Active Substance: TOFACITINIB CITRATE
     Indication: RHEUMATOID ARTHRITIS
     Route: 048
     Dates: start: 201708

REACTIONS (7)
  - Head injury [None]
  - Fall [None]
  - Kidney infection [None]
  - Fatigue [None]
  - Seizure [None]
  - Abdominal discomfort [None]
  - Weight increased [None]
